FAERS Safety Report 20411603 (Version 1)
Quarter: 2022Q1

REPORT INFORMATION
  Report Type: Spontaneous
  Country: US (occurrence: US)
  Receive Date: 20220201
  Receipt Date: 20220201
  Transmission Date: 20220423
  Serious: Yes (Hospitalization, Other)
  Sender: FDA-Public Use
  Company Number: US-MMM-EPQBW56N

PATIENT
  Age: 49 Year
  Sex: Female

DRUGS (2)
  1. TIVICAY [Suspect]
     Active Substance: DOLUTEGRAVIR SODIUM
     Indication: HIV infection
     Dosage: UNK
  2. DESCOVY [Concomitant]
     Active Substance: EMTRICITABINE\TENOFOVIR ALAFENAMIDE FUMARATE
     Indication: HIV infection
     Dosage: UNK

REACTIONS (2)
  - Cardiac arrest [Not Recovered/Not Resolved]
  - Loss of consciousness [Unknown]

NARRATIVE: CASE EVENT DATE: 20211221
